FAERS Safety Report 14893709 (Version 4)
Quarter: 2019Q1

REPORT INFORMATION
  Report Type: Spontaneous
  Country: US (occurrence: US)
  Receive Date: 20180514
  Receipt Date: 20190215
  Transmission Date: 20190417
  Serious: Yes (Hospitalization, Other)
  Sender: FDA-Public Use
  Company Number: US-DSJP-DSU-2017-144250

PATIENT

DRUGS (1)
  1. BENICAR [Suspect]
     Active Substance: OLMESARTAN MEDOXOMIL
     Indication: PRODUCT USED FOR UNKNOWN INDICATION
     Dosage: 40 MG, QD
     Route: 048
     Dates: end: 20151201

REACTIONS (9)
  - Irritable bowel syndrome [Not Recovered/Not Resolved]
  - Chronic kidney disease [Unknown]
  - Hiatus hernia [Recovered/Resolved]
  - Rectal haemorrhage [Unknown]
  - Polyp [Unknown]
  - Haemorrhoids [Unknown]
  - Weight decreased [Unknown]
  - Diverticulitis [Unknown]
  - Acute kidney injury [Unknown]

NARRATIVE: CASE EVENT DATE: 20040601
